FAERS Safety Report 7601476-9 (Version None)
Quarter: 2011Q3

REPORT INFORMATION
  Report Type: 
  Country: None (occurrence: None)
  Receive Date: 20110711
  Receipt Date: 20110705
  Transmission Date: 20111222
  Serious: Yes (Other)
  Sender: FDA-Public Use
  Company Number: US-PFIZER INC-2011150747

PATIENT
  Sex: Male
  Weight: 72.109 kg

DRUGS (1)
  1. ZITHROMAX [Suspect]
     Indication: CYSTIC FIBROSIS
     Dosage: 500 MG, 1X/DAY
     Route: 042
     Dates: start: 20100601

REACTIONS (2)
  - PANCREATITIS CHRONIC [None]
  - MYCOBACTERIUM AVIUM COMPLEX INFECTION [None]
